FAERS Safety Report 21648064 (Version 1)
Quarter: 2022Q4

REPORT INFORMATION
  Report Type: Spontaneous
  Country: DE (occurrence: DE)
  Receive Date: 20221128
  Receipt Date: 20221128
  Transmission Date: 20230112
  Serious: Yes (Other)
  Sender: FDA-Public Use
  Company Number: DE-UCBSA-2022064175

PATIENT
  Age: 26 Year
  Sex: Male

DRUGS (11)
  1. TOPIRAMATE [Suspect]
     Active Substance: TOPIRAMATE
     Indication: Epilepsy
     Dosage: 200 MILLIGRAM, ONCE A DAY (100 MILLIGRAM, 2X/DAY (BID))
     Route: 065
     Dates: start: 2008
  2. CARBAMAZEPINE [Suspect]
     Active Substance: CARBAMAZEPINE
     Indication: Epilepsy
     Dosage: 800 MILLIGRAM, ONCE A DAY(400 MILLIGRAM, 2X/DAY (BID))
     Route: 065
     Dates: start: 2008
  3. KEPPRA [Suspect]
     Active Substance: LEVETIRACETAM
     Indication: Epilepsy
     Dosage: 2000 MILLIGRAM, ONCE A DAY (1000 MILLIGRAM, 2X/DAY (BID))
     Route: 065
     Dates: start: 2008, end: 2015
  4. KEPPRA [Suspect]
     Active Substance: LEVETIRACETAM
     Dosage: 3000 MILLIGRAM, ONCE A DAY
     Route: 065
     Dates: start: 2015
  5. PHENYTOIN [Suspect]
     Active Substance: PHENYTOIN
     Indication: Epilepsy
     Dosage: 400 MILLIGRAM, ONCE A DAY (200 MILLIGRAM, 2X/DAY (BID))
     Route: 065
     Dates: start: 2008
  6. VIMPAT [Suspect]
     Active Substance: LACOSAMIDE
     Indication: Epilepsy
     Dosage: 300 MILLIGRAM
     Route: 065
  7. VIMPAT [Suspect]
     Active Substance: LACOSAMIDE
     Dosage: 400 MILLIGRAM, ONCE A DAY
     Route: 065
     Dates: start: 2015
  8. OXCARBAZEPINE [Concomitant]
     Active Substance: OXCARBAZEPINE
     Indication: Epilepsy
     Dosage: 1800 MILLIGRAM, ONCE DAILY (QD)
     Route: 065
  9. VALPROIC ACID [Concomitant]
     Active Substance: VALPROIC ACID
     Indication: Epilepsy
     Dosage: 3000 MILLIGRAM, ONCE DAILY (QD)
     Route: 065
     Dates: start: 2015
  10. FYCOMPA [Concomitant]
     Active Substance: PERAMPANEL
     Indication: Epilepsy
     Dosage: 4MG, OUTPATIENT INCREASE TO 12 MG
     Route: 065
  11. Apydan [Concomitant]
     Indication: Epilepsy
     Dosage: 2100 MILLIGRAM, UNK
     Route: 065
     Dates: start: 201906

REACTIONS (2)
  - Tonic convulsion [Unknown]
  - Multiple-drug resistance [Unknown]
